FAERS Safety Report 23097521 (Version 1)
Quarter: 2023Q4

REPORT INFORMATION
  Report Type: Spontaneous
  Country: US (occurrence: None)
  Receive Date: 20231023
  Receipt Date: 20231023
  Transmission Date: 20240110
  Serious: No
  Sender: FDA-Public Use
  Company Number: 2023A188961

PATIENT
  Age: 43 Year
  Sex: Female

DRUGS (3)
  1. SAPHNELO [Suspect]
     Active Substance: ANIFROLUMAB-FNIA
     Indication: Systemic lupus erythematosus
     Route: 042
     Dates: start: 20230728, end: 20230728
  2. SAPHNELO [Suspect]
     Active Substance: ANIFROLUMAB-FNIA
     Indication: Systemic lupus erythematosus
     Route: 042
     Dates: start: 20230728, end: 20230728
  3. METOPROLOL TARTRATE [Suspect]
     Active Substance: METOPROLOL TARTRATE
     Dosage: 1 TABLET
     Route: 048

REACTIONS (1)
  - Pruritus [Unknown]
